FAERS Safety Report 18514917 (Version 2)
Quarter: 2021Q4

REPORT INFORMATION
  Report Type: Spontaneous
  Country: US (occurrence: US)
  Receive Date: 20201118
  Receipt Date: 20211129
  Transmission Date: 20220303
  Serious: No
  Sender: FDA-Public Use
  Company Number: US-UCBSA-2019041325

PATIENT
  Age: 10 Year
  Sex: Male

DRUGS (1)
  1. VIMPAT [Suspect]
     Active Substance: LACOSAMIDE
     Indication: Product used for unknown indication
     Dosage: UNK
     Dates: start: 201704

REACTIONS (5)
  - Seizure [Unknown]
  - Urticaria [Unknown]
  - Diplopia [Unknown]
  - Drug ineffective [Unknown]
  - Product storage error [Unknown]

NARRATIVE: CASE EVENT DATE: 20190901
